FAERS Safety Report 6631552-9 (Version None)
Quarter: 2010Q1

REPORT INFORMATION
  Report Type: 
  Country: None (occurrence: None)
  Receive Date: 20100312
  Receipt Date: 20100308
  Transmission Date: 20100710
  Serious: Yes (Life-Threatening)
  Sender: FDA-Public Use
  Company Number: FR-ASTRAZENECA-2010SE09878

PATIENT
  Age: 72 Year
  Sex: Male

DRUGS (3)
  1. DIPRIVAN [Suspect]
     Indication: ANAESTHESIA
     Dosage: ONCE/SINGLE ADMINISTRATION
     Route: 042
     Dates: start: 20100129
  2. CELOCURIN [Suspect]
     Indication: ANAESTHESIA
     Dosage: ONCE/SINGLE ADMINISTRATION
     Route: 042
     Dates: start: 20100129
  3. SUFENTANIL MERCK [Suspect]
     Indication: ANAESTHESIA
     Dosage: ONCE/SINGLE ADMINISTRATION
     Route: 042
     Dates: start: 20100129

REACTIONS (6)
  - ANAPHYLACTIC SHOCK [None]
  - BRADYARRHYTHMIA [None]
  - CIRCULATORY COLLAPSE [None]
  - ERYTHEMA [None]
  - HYPOCAPNIA [None]
  - TACHYCARDIA [None]
